FAERS Safety Report 4411348-9 (Version None)
Quarter: 2004Q3

REPORT INFORMATION
  Report Type: 
  Country: None (occurrence: None)
  Receive Date: 20040727
  Receipt Date: 20040714
  Transmission Date: 20050211
  Serious: Yes (Other)
  Sender: FDA-Public Use
  Company Number: JP-SHR-04-022446

PATIENT
  Age: 69 Year
  Sex: Female

DRUGS (4)
  1. PROSCOPE 300 (IOPROMIDE) [Suspect]
     Indication: COMPUTERISED TOMOGRAM
     Dosage: 100 ML, 1 DOSE, INTRAVENOUS
     Route: 042
     Dates: start: 20040305, end: 20040305
  2. FERRIC SODIUM GLUCONATE COMPLEX (FERRIC SODIUM GLUCONATE COMPLEX) [Concomitant]
  3. ELECTROLYTES WITH CARBOHYDRATES [Concomitant]
  4. SOLUTIONS FOR PARENTERAL NUTRITION [Concomitant]

REACTIONS (11)
  - BLOOD PRESSURE IMMEASURABLE [None]
  - BLOOD PRESSURE SYSTOLIC DECREASED [None]
  - DEPRESSED LEVEL OF CONSCIOUSNESS [None]
  - DYSPHORIA [None]
  - FACE OEDEMA [None]
  - MUSCULOSKELETAL STIFFNESS [None]
  - PERIPHERAL COLDNESS [None]
  - PERITONITIS [None]
  - RASH [None]
  - SHOCK [None]
  - VOMITING [None]
